FAERS Safety Report 18559295 (Version 1)
Quarter: 2020Q4

REPORT INFORMATION
  Report Type: Spontaneous
  Country: US (occurrence: US)
  Receive Date: 20201130
  Receipt Date: 20201130
  Transmission Date: 20210114
  Serious: No
  Sender: FDA-Public Use
  Company Number: US-PFIZER INC-2020468342

PATIENT
  Age: 58 Year
  Sex: Female

DRUGS (1)
  1. IBRANCE [Suspect]
     Active Substance: PALBOCICLIB
     Indication: WHITE BLOOD CELL COUNT INCREASED
     Dosage: 125 MG, CYCLIC (125 MG QD (ONCE A DAY) X 21 DAYS)
     Dates: start: 20201125

REACTIONS (3)
  - Red blood cell count decreased [Unknown]
  - Fatigue [Unknown]
  - Off label use [Unknown]
